FAERS Safety Report 8125296 (Version 6)
Quarter: 2013Q1

REPORT INFORMATION
  Report Type: Spontaneous
  Country: US (occurrence: US)
  Receive Date: 20110908
  Receipt Date: 20130118
  Transmission Date: 20140127
  Serious: Yes (Hospitalization, Other)
  Sender: FDA-Public Use
  Company Number: US-BIOGENIDEC-2008BI028789

PATIENT
  Age: 46 Year
  Sex: Male

DRUGS (8)
  1. AVONEX [Suspect]
     Indication: MULTIPLE SCLEROSIS
     Route: 030
     Dates: start: 20000930, end: 2008
  2. AVONEX [Suspect]
     Indication: MULTIPLE SCLEROSIS
     Route: 030
     Dates: start: 20111216
  3. TRAZODONE [Concomitant]
     Indication: SLEEP DISORDER
  4. VENLAFAXIN [Concomitant]
     Indication: ANXIETY
  5. SIMVASTATIN [Concomitant]
     Indication: BLOOD CHOLESTEROL INCREASED
  6. LEVETIRACETAM [Concomitant]
  7. FENOFIBRATE [Concomitant]
  8. CLONAZEPAM [Concomitant]
     Indication: CONVULSION

REACTIONS (8)
  - Heat stroke [Recovered/Resolved]
  - Dehydration [Not Recovered/Not Resolved]
  - Convulsion [Not Recovered/Not Resolved]
  - Grand mal convulsion [Recovered/Resolved]
  - Cystitis [Recovered/Resolved]
  - Amnesia [Not Recovered/Not Resolved]
  - Memory impairment [Not Recovered/Not Resolved]
  - Fall [Recovered/Resolved]
